FAERS Safety Report 9686638 (Version 4)
Quarter: 2013Q4

REPORT INFORMATION
  Report Type: Spontaneous
  Country: JP (occurrence: JP)
  Receive Date: 20131113
  Receipt Date: 20131219
  Transmission Date: 20140711
  Serious: Yes (Hospitalization, Other)
  Sender: FDA-Public Use
  Company Number: JP-UCBSA-095061

PATIENT
  Age: 4 Month
  Sex: Female
  Weight: 4.6 kg

DRUGS (8)
  1. E KEPPRA [Suspect]
     Indication: EPILEPSY
     Route: 048
     Dates: start: 20130628, end: 20130628
  2. E KEPPRA [Suspect]
     Indication: EPILEPSY
     Route: 048
     Dates: start: 20130626, end: 20130628
  3. E KEPPRA [Suspect]
     Indication: EPILEPSY
     Route: 048
     Dates: start: 20130625, end: 20130626
  4. E KEPPRA [Suspect]
     Indication: EPILEPSY
     Route: 048
     Dates: start: 20130621, end: 20130625
  5. DEPAKENE [Suspect]
     Indication: EPILEPSY
     Route: 048
     Dates: start: 20130430
  6. MYSTAN [Concomitant]
     Indication: PARTIAL SEIZURES
     Route: 048
     Dates: start: 20130412
  7. PHENOBAL [Concomitant]
     Indication: PARTIAL SEIZURES
     Route: 048
     Dates: start: 20130313
  8. DORMICUM [Concomitant]
     Route: 042
     Dates: start: 20130621, end: 20130710

REACTIONS (4)
  - Apnoeic attack [Recovered/Resolved]
  - Alopecia [Recovered/Resolved]
  - Wrong technique in drug usage process [Unknown]
  - Drug ineffective [Recovered/Resolved]
